FAERS Safety Report 25117896 (Version 1)
Quarter: 2025Q1

REPORT INFORMATION
  Report Type: Spontaneous
  Country: EG (occurrence: EG)
  Receive Date: 20250325
  Receipt Date: 20250325
  Transmission Date: 20250408
  Serious: Yes (Other)
  Sender: XELLIA PHARMACEUTICALS
  Company Number: EG-Axellia-005566

PATIENT
  Age: 45 Year
  Sex: Male

DRUGS (1)
  1. DAPTOMYCIN [Suspect]
     Active Substance: DAPTOMYCIN
     Indication: Sepsis

REACTIONS (2)
  - Hypoxia [Recovered/Resolved]
  - Hypersensitivity [Recovered/Resolved]
